FAERS Safety Report 9376055 (Version 1)
Quarter: 2013Q2

REPORT INFORMATION
  Report Type: Spontaneous
  Country: VN (occurrence: VN)
  Receive Date: 20130629
  Receipt Date: 20130629
  Transmission Date: 20140414
  Serious: Yes (Death)
  Sender: FDA-Public Use
  Company Number: VN-B.I. PHARMACEUTICALS,INC./RIDGEFIELD-2013-BI-18210VN

PATIENT
  Age: 49 Year
  Sex: Female

DRUGS (4)
  1. MOBIC [Suspect]
     Indication: ANALGESIC THERAPY
     Dosage: 15 MG
     Route: 030
     Dates: start: 20130620, end: 20130620
  2. MOBIC [Suspect]
     Indication: URINARY TRACT INFECTION
  3. ANPHA FOS/FOSFOMYCIN [Concomitant]
     Indication: URINARY TRACT INFECTION
     Dosage: 1 G
     Route: 042
     Dates: start: 20130619, end: 20130619
  4. MOBIC [Concomitant]
     Indication: URINARY TRACT INFECTION
     Dosage: 7.5 MG
     Route: 048
     Dates: start: 20130619, end: 20130619

REACTIONS (1)
  - Anaphylactic shock [Fatal]
